FAERS Safety Report 8601510-3 (Version None)
Quarter: 2012Q3

REPORT INFORMATION
  Report Type: 
  Country: None (occurrence: None)
  Receive Date: 20120817
  Receipt Date: 20111020
  Transmission Date: 20120928
  Serious: Yes (Hospitalization)
  Sender: FDA-Public Use
  Company Number: US-BRISTOL-MYERS SQUIBB COMPANY-16182156

PATIENT
  Sex: Female

DRUGS (2)
  1. SPRYCEL [Suspect]
  2. PRADAXA [Suspect]

REACTIONS (1)
  - CARDIAC FAILURE CONGESTIVE [None]
